FAERS Safety Report 26208275 (Version 1)
Quarter: 2025Q4

REPORT INFORMATION
  Report Type: Spontaneous
  Country: US (occurrence: US)
  Receive Date: 20251229
  Receipt Date: 20251229
  Transmission Date: 20260117
  Serious: No
  Sender: BAUSCH AND LOMB
  Company Number: US-BAUSCH-BH-2025-022840

PATIENT
  Age: 78 Year
  Sex: Female

DRUGS (2)
  1. RETIN-A [Suspect]
     Active Substance: TRETINOIN
     Indication: Skin wrinkling
     Route: 065
  2. RETIN-A [Suspect]
     Active Substance: TRETINOIN
     Indication: Product use in unapproved indication

REACTIONS (3)
  - Application site exfoliation [Unknown]
  - Product prescribing issue [Unknown]
  - Product use in unapproved indication [Unknown]
